FAERS Safety Report 18562374 (Version 1)
Quarter: 2020Q4

REPORT INFORMATION
  Report Type: Spontaneous
  Country: US (occurrence: US)
  Receive Date: 20201130
  Receipt Date: 20201130
  Transmission Date: 20210114
  Serious: No
  Sender: FDA-Public Use
  Company Number: US-JNJFOC-20201139623

PATIENT
  Age: 19 Year
  Sex: Male
  Weight: 54.48 kg

DRUGS (1)
  1. RISPERDAL [Suspect]
     Active Substance: RISPERIDONE
     Indication: MENTAL DISORDER
     Route: 048

REACTIONS (1)
  - Breast enlargement [Unknown]

NARRATIVE: CASE EVENT DATE: 20191119
